FAERS Safety Report 20174415 (Version 1)
Quarter: 2021Q4

REPORT INFORMATION
  Report Type: Spontaneous
  Country: US (occurrence: US)
  Receive Date: 20211213
  Receipt Date: 20211213
  Transmission Date: 20220303
  Serious: No
  Sender: FDA-Public Use
  Company Number: US-BEH-2021139289

PATIENT
  Age: 31 Year
  Sex: Female

DRUGS (2)
  1. PRIVIGEN [Suspect]
     Active Substance: HUMAN IMMUNOGLOBULIN G
     Indication: Polyneuropathy
     Dosage: 40 GRAM, QW
     Route: 042
     Dates: start: 20211206, end: 20211206
  2. PRIVIGEN [Suspect]
     Active Substance: HUMAN IMMUNOGLOBULIN G
     Indication: Neuropathy peripheral
     Dosage: UNK
     Route: 065

REACTIONS (3)
  - Rash [Unknown]
  - No adverse event [Unknown]
  - Treatment delayed [Unknown]

NARRATIVE: CASE EVENT DATE: 20211206
